FAERS Safety Report 8512740 (Version 2)
Quarter: 2013Q3

REPORT INFORMATION
  Report Type: Spontaneous
  Country: US (occurrence: US)
  Receive Date: 20120413
  Receipt Date: 20130723
  Transmission Date: 20140515
  Serious: Yes (Other)
  Sender: FDA-Public Use
  Company Number: US-ASTRAZENECA-2011SE53424

PATIENT
  Age: 39 Year
  Sex: Female
  Weight: 59 kg

DRUGS (4)
  1. NEXIUM [Suspect]
     Indication: GASTROOESOPHAGEAL REFLUX DISEASE
     Route: 048
     Dates: start: 2006, end: 2006
  2. NEXIUM [Suspect]
     Indication: GASTROOESOPHAGEAL REFLUX DISEASE
     Route: 048
     Dates: start: 2007
  3. PROAIR [Concomitant]
     Indication: ASTHMA
     Dosage: UNKNOWN DOSE AS REQUIRED
     Route: 055
     Dates: start: 2006
  4. QVAR [Concomitant]
     Indication: ASTHMA
     Dosage: UNKNOWN DOSE TWO TIMES  A DAY
     Route: 055
     Dates: start: 2006

REACTIONS (11)
  - Exposure during pregnancy [Unknown]
  - Rectal haemorrhage [Not Recovered/Not Resolved]
  - Ill-defined disorder [Unknown]
  - Haemorrhoids [Not Recovered/Not Resolved]
  - Laryngospasm [Not Recovered/Not Resolved]
  - Gastrooesophageal reflux disease [Not Recovered/Not Resolved]
  - Hiatus hernia [Not Recovered/Not Resolved]
  - Asthma [Not Recovered/Not Resolved]
  - Diarrhoea [Not Recovered/Not Resolved]
  - Nausea [Not Recovered/Not Resolved]
  - Drug dose omission [Unknown]
